FAERS Safety Report 15254294 (Version 1)
Quarter: 2018Q3

REPORT INFORMATION
  Report Type: Report from Study
  Country: CN (occurrence: CN)
  Receive Date: 20180808
  Receipt Date: 20180808
  Transmission Date: 20181010
  Serious: Yes (Other)
  Sender: FDA-Public Use
  Company Number: CN-ACTELION-A-CH2018-176957

PATIENT
  Age: 28 Year
  Sex: Male
  Weight: 172 kg

DRUGS (1)
  1. TRACLEER [Suspect]
     Active Substance: BOSENTAN
     Indication: PULMONARY ARTERIAL HYPERTENSION
     Dosage: 125 MG, BID
     Route: 048
     Dates: start: 201712, end: 201807

REACTIONS (2)
  - Blood creatinine increased [Unknown]
  - Surgery [Unknown]

NARRATIVE: CASE EVENT DATE: 201807
